FAERS Safety Report 15116715 (Version 2)
Quarter: 2018Q3

REPORT INFORMATION
  Report Type: Report from Study
  Country: US (occurrence: US)
  Receive Date: 20180706
  Receipt Date: 20180712
  Transmission Date: 20181010
  Serious: Yes (Other)
  Sender: FDA-Public Use
  Company Number: US-GILEAD-2018-0348138

PATIENT

DRUGS (6)
  1. FK 506 [Concomitant]
     Active Substance: TACROLIMUS
  2. SIMEPREVIR [Suspect]
     Active Substance: SIMEPREVIR
     Indication: CHRONIC HEPATITIS C
     Dosage: UNK
     Route: 065
  3. PREDNISOLONE. [Concomitant]
     Active Substance: PREDNISOLONE
  4. SOFOSBUVIR [Suspect]
     Active Substance: SOFOSBUVIR
     Indication: CHRONIC HEPATITIS C
     Dosage: UNK
     Route: 065
  5. MMF [Concomitant]
     Active Substance: MYCOPHENOLATE MOFETIL
  6. BASILIXIMAB [Concomitant]
     Active Substance: BASILIXIMAB

REACTIONS (1)
  - Kidney transplant rejection [Unknown]
